FAERS Safety Report 24871609 (Version 1)
Quarter: 2025Q1

REPORT INFORMATION
  Report Type: Report from Study
  Country: US (occurrence: US)
  Receive Date: 20250122
  Receipt Date: 20250122
  Transmission Date: 20250408
  Serious: Yes (Death)
  Sender: ABBVIE
  Company Number: US-ABBVIE-6097149

PATIENT
  Age: 85 Year
  Sex: Female

DRUGS (1)
  1. IMBRUVICA [Suspect]
     Active Substance: IBRUTINIB
     Indication: Follicular lymphoma
     Route: 048
     Dates: end: 20250113

REACTIONS (1)
  - Death [Fatal]

NARRATIVE: CASE EVENT DATE: 20250113
